FAERS Safety Report 9310486 (Version 1)
Quarter: 2013Q2

REPORT INFORMATION
  Report Type: Spontaneous
  Country: US (occurrence: US)
  Receive Date: 20130527
  Receipt Date: 20130527
  Transmission Date: 20140414
  Serious: No
  Sender: FDA-Public Use
  Company Number: US-PFIZER INC-2013158805

PATIENT
  Age: 10 Decade
  Sex: Female
  Weight: 49.89 kg

DRUGS (2)
  1. CELEBREX [Suspect]
     Indication: COMPRESSION FRACTURE
     Dosage: 100 MG, 1X/DAY
     Route: 048
     Dates: end: 201304
  2. CELEBREX [Suspect]
     Indication: ARTHRITIS
     Dosage: 200 MG, 1X/DAY
     Route: 048
     Dates: start: 20130509

REACTIONS (1)
  - Decreased appetite [Unknown]
